FAERS Safety Report 8759208 (Version 1)
Quarter: 2012Q4

REPORT INFORMATION
  Report Type: 
  Country: SE (occurrence: SE)
  Receive Date: 20120829
  Receipt Date: 20120829
  Transmission Date: 20130627
  Serious: Yes (Hospitalization)
  Sender: FDA-Public Use
  Company Number: SE-MYLANLABS-2012S1016793

PATIENT
  Sex: Male

DRUGS (4)
  1. CLOMIPRAMINE [Suspect]
     Indication: DEPRESSION
     Dosage: 50 mg in the morning and 75 mg in the evening
  2. CLOMIPRAMINE [Suspect]
     Indication: ANXIETY
     Dosage: 50 mg in the morning and 75 mg in the evening
  3. CLOMIPRAMINE [Suspect]
     Indication: DEPRESSION
     Dosage: 75 mg in the morning and 100 mg in the evening
  4. CLOMIPRAMINE [Suspect]
     Indication: ANXIETY
     Dosage: 75 mg in the morning and 100 mg in the evening

REACTIONS (6)
  - Incorrect route of drug administration [Unknown]
  - Anxiety [Unknown]
  - Movement disorder [Unknown]
  - Muscle spasms [Unknown]
  - Constipation [Unknown]
  - Infection [Unknown]
